FAERS Safety Report 7780933-9 (Version None)
Quarter: 2011Q3

REPORT INFORMATION
  Report Type: 
  Country: None (occurrence: None)
  Receive Date: 20110927
  Receipt Date: 20110922
  Transmission Date: 20111222
  Serious: Yes (Other)
  Sender: FDA-Public Use
  Company Number: NL-JNJFOC-20110908876

PATIENT
  Sex: Male

DRUGS (1)
  1. STELARA [Suspect]
     Indication: ILL-DEFINED DISORDER
     Route: 058

REACTIONS (1)
  - DIABETES MELLITUS [None]
